FAERS Safety Report 24218016 (Version 1)
Quarter: 2024Q3

REPORT INFORMATION
  Report Type: Spontaneous
  Country: GB (occurrence: GB)
  Receive Date: 20240816
  Receipt Date: 20240816
  Transmission Date: 20241017
  Serious: Yes (Hospitalization)
  Sender: TEVA
  Company Number: GB-ROCHE-3529219

PATIENT
  Age: 78 Year
  Sex: Male
  Weight: 85 kg

DRUGS (26)
  1. CARBOPLATIN [Suspect]
     Active Substance: CARBOPLATIN
     Indication: Small cell lung cancer extensive stage
     Dosage: MOST RECENT DOSE OF STUDY DRUG PRIOR TO AE AND SAE 18-MAY-2023
     Route: 042
     Dates: start: 20230309
  2. CHLORHEXIDINE [Concomitant]
     Active Substance: CHLORHEXIDINE
     Indication: Mucosal inflammation
     Dates: start: 20230331
  3. AMOXICILLIN [Concomitant]
     Active Substance: AMOXICILLIN
     Dates: start: 20240319, end: 20240321
  4. TRELEGY ELLIPTA [Concomitant]
     Active Substance: FLUTICASONE FUROATE\UMECLIDINIUM BROMIDE\VILANTEROL TRIFENATATE
     Indication: Chronic obstructive pulmonary disease
     Route: 048
     Dates: start: 20160511
  5. TRELEGY ELLIPTA [Concomitant]
     Active Substance: FLUTICASONE FUROATE\UMECLIDINIUM BROMIDE\VILANTEROL TRIFENATATE
     Indication: Chronic obstructive pulmonary disease
     Dates: start: 20240319
  6. CLARITHROMYCIN [Concomitant]
     Active Substance: CLARITHROMYCIN
     Indication: Lower respiratory tract infection
     Dates: start: 20240229, end: 20240305
  7. PREDNISOLONE [Concomitant]
     Active Substance: PREDNISOLONE
     Indication: Lower respiratory tract infection
     Dates: start: 20240319, end: 20240321
  8. PREDNISOLONE [Concomitant]
     Active Substance: PREDNISOLONE
     Indication: Lower respiratory tract infection
     Route: 048
     Dates: start: 20240229, end: 20240305
  9. LORATADINE [Concomitant]
     Active Substance: LORATADINE
     Dates: start: 20240319
  10. SEA WATER [Concomitant]
     Active Substance: SEA WATER
     Dates: start: 20240115
  11. POLYETHYLENE GLYCOL 3350\POTASSIUM CHLORIDE\SODIUM BICARBONATE\SODIUM [Concomitant]
     Active Substance: POLYETHYLENE GLYCOL 3350\POTASSIUM CHLORIDE\SODIUM BICARBONATE\SODIUM CHLORIDE
     Dates: start: 20230426
  12. POLYETHYLENE GLYCOL 3350\POTASSIUM CHLORIDE\SODIUM BICARBONATE\SODIUM [Concomitant]
     Active Substance: POLYETHYLENE GLYCOL 3350\POTASSIUM CHLORIDE\SODIUM BICARBONATE\SODIUM CHLORIDE
     Dates: start: 20230518
  13. LANSOPRAZOLE [Concomitant]
     Active Substance: LANSOPRAZOLE
     Indication: Dyspepsia
     Dates: start: 20231031
  14. LANSOPRAZOLE [Concomitant]
     Active Substance: LANSOPRAZOLE
     Indication: Dyspepsia
     Dosage: LANSOPRAZOLE DELAYED RELEASE
  15. AVEENO [Concomitant]
     Active Substance: DIMETHICONE\HOMOSALATE\OCTINOXATE\OCTISALATE\TITANIUM DIOXIDE
     Indication: Rash
     Route: 061
     Dates: start: 20230801
  16. ETOPOSIDE [Suspect]
     Active Substance: ETOPOSIDE
     Indication: Small cell lung cancer extensive stage
     Dosage: MOST RECENT DOSE OF STUDY DRUG PRIOR TO AE AND SAE 18-MAY-2023 FREQUENCY TEXT:OTHER
     Route: 065
     Dates: start: 20230309
  17. ACETAMINOPHEN [Concomitant]
     Active Substance: ACETAMINOPHEN
     Dates: start: 20230426
  18. DOCUSATE [Concomitant]
     Active Substance: DOCUSATE
     Indication: Constipation
     Dates: start: 20230301
  19. ALBUTEROL [Concomitant]
     Active Substance: ALBUTEROL
     Indication: Chronic obstructive pulmonary disease
  20. ALBUTEROL [Concomitant]
     Active Substance: ALBUTEROL
     Indication: Chronic obstructive pulmonary disease
     Dosage: SALBUTAMOL SULPHATE
     Dates: start: 20240318
  21. AMOROLFINE [Concomitant]
     Active Substance: AMOROLFINE
     Route: 061
     Dates: start: 20240319
  22. DOXYCYCLINE [Concomitant]
     Active Substance: DOXYCYCLINE\DOXYCYCLINE HYCLATE
     Indication: Cough
     Dates: start: 20240220
  23. BECLOMETHASONE DIPROPIONATE [Concomitant]
     Active Substance: BECLOMETHASONE DIPROPIONATE
     Dates: start: 20240115
  24. SENNAE [Concomitant]
     Indication: Constipation
     Route: 048
     Dates: start: 20230328
  25. ATORVASTATIN [Concomitant]
     Active Substance: ATORVASTATIN
     Dates: start: 20190125
  26. ATEZOLIZUMAB [Concomitant]
     Active Substance: ATEZOLIZUMAB
     Indication: Small cell lung cancer extensive stage
     Dosage: MOST RECENT DOSE OF STUDY DRUG PRIOR TO AE AND SAE 13-MAR-2024, INTRAVENOUS DRIP
     Dates: start: 20230309

REACTIONS (2)
  - Productive cough [Recovered/Resolved]
  - Dyspnoea [Recovered/Resolved]

NARRATIVE: CASE EVENT DATE: 20240317
